FAERS Safety Report 23029780 (Version 3)
Quarter: 2023Q4

REPORT INFORMATION
  Report Type: Spontaneous
  Country: JP (occurrence: JP)
  Receive Date: 20231004
  Receipt Date: 20231027
  Transmission Date: 20240110
  Serious: Yes (Other)
  Sender: FDA-Public Use
  Company Number: JP-SA-2023SA300310

PATIENT
  Age: 55 Year
  Sex: Female
  Weight: 51 kg

DRUGS (4)
  1. DUPIXENT [Suspect]
     Active Substance: DUPILUMAB
     Indication: Dermatitis atopic
     Dosage: 300 MG/DOSE, LEFT UPPER ARM
     Route: 058
     Dates: start: 20231003
  2. ALFACALCIDOL [Concomitant]
     Active Substance: ALFACALCIDOL
     Indication: Product used for unknown indication
     Dosage: 1 DF/DOSE
     Route: 048
     Dates: start: 20221128
  3. RALOXIFENE HYDROCHLORIDE [Concomitant]
     Active Substance: RALOXIFENE HYDROCHLORIDE
     Indication: Product used for unknown indication
     Dosage: 1 DF/DOSE
     Route: 048
     Dates: start: 20221128
  4. RUPAFIN [Concomitant]
     Active Substance: RUPATADINE FUMARATE
     Indication: Product used for unknown indication
     Dosage: 2 DF/DOSE
     Route: 048
     Dates: start: 20200208

REACTIONS (3)
  - Anaphylactic shock [Unknown]
  - Injection site urticaria [Recovered/Resolved]
  - Hypersensitivity [Unknown]

NARRATIVE: CASE EVENT DATE: 20231003
